FAERS Safety Report 7866608-6 (Version None)
Quarter: 2011Q4

REPORT INFORMATION
  Report Type: 
  Country: None (occurrence: None)
  Receive Date: 20111028
  Receipt Date: 20110713
  Transmission Date: 20120403
  Serious: No
  Sender: FDA-Public Use
  Company Number: US-GLAXOSMITHKLINE-A0936690A

PATIENT
  Age: 80 Year
  Sex: Female

DRUGS (10)
  1. TRIAMTERENE AND HYDROCHLOROTHIAZIDE [Concomitant]
  2. ZYPREXA [Concomitant]
  3. CYMBALTA [Concomitant]
  4. ADVAIR DISKUS 100/50 [Suspect]
     Indication: ASTHMA
     Dosage: 1PUFF TWICE PER DAY
     Route: 055
     Dates: start: 20060101
  5. ALPHAGAN [Concomitant]
  6. LAMOTRIGINE [Concomitant]
  7. GLUCOSAMINE [Concomitant]
  8. LITHIUM CITRATE [Concomitant]
  9. ASPIRIN [Concomitant]
  10. VITAMIN D [Concomitant]

REACTIONS (1)
  - HEART RATE INCREASED [None]
